FAERS Safety Report 5424006-9 (Version None)
Quarter: 2007Q3

REPORT INFORMATION
  Report Type: 
  Country: None (occurrence: None)
  Receive Date: 20070727
  Receipt Date: 20061010
  Transmission Date: 20080115
  Serious: Yes (Hospitalization, Other)
  Sender: FDA-Public Use
  Company Number: THYM-11066

PATIENT
  Age: 42 Year
  Sex: Male
  Weight: 104.7809 kg

DRUGS (13)
  1. THYMOGLOBULIN [Suspect]
     Indication: RENAL TRANSPLANT
     Dosage: 150 MG QD IV
     Route: 042
     Dates: start: 20051227, end: 20051229
  2. SOLU-MEDROL [Concomitant]
  3. TACROLIMIUS [Concomitant]
  4. MYCOPHENOLATE MOFETIL [Concomitant]
  5. DOCUSATE [Concomitant]
  6. LANSOPRAZOLE [Concomitant]
  7. QUINAPRIL HCL [Concomitant]
  8. AMLODIPINE [Concomitant]
  9. SIMVASTATIN [Concomitant]
  10. BACTRIM [Concomitant]
  11. VALGANCICLOVIR HCL [Concomitant]
  12. NYSTATIN [Concomitant]
  13. VITAMIN CAP [Concomitant]

REACTIONS (2)
  - HYPERGLYCAEMIA [None]
  - KIDNEY TRANSPLANT REJECTION [None]
